FAERS Safety Report 21541705 (Version 1)
Quarter: 2022Q4

REPORT INFORMATION
  Report Type: Report from Study
  Country: US (occurrence: US)
  Receive Date: 20221102
  Receipt Date: 20221102
  Transmission Date: 20230113
  Serious: No
  Sender: FDA-Public Use
  Company Number: US-ABBVIE-4150487

PATIENT
  Sex: Female

DRUGS (1)
  1. HUMIRA [Suspect]
     Active Substance: ADALIMUMAB
     Indication: Product used for unknown indication
     Route: 058

REACTIONS (6)
  - Dry skin [Unknown]
  - Solar urticaria [Unknown]
  - Blood urea increased [Unknown]
  - Hypothyroidism [Unknown]
  - Hypersensitivity [Unknown]
  - Lip dry [Unknown]

NARRATIVE: CASE EVENT DATE: 20220101
